FAERS Safety Report 9621039 (Version 1)
Quarter: 2013Q4

REPORT INFORMATION
  Report Type: Spontaneous
  Country: US (occurrence: US)
  Receive Date: 20131015
  Receipt Date: 20131015
  Transmission Date: 20140711
  Serious: Yes (Hospitalization)
  Sender: FDA-Public Use
  Company Number: PHEH2013US021032

PATIENT
  Age: 41 Year
  Sex: Female

DRUGS (7)
  1. TOBI PODHALER [Suspect]
     Indication: CYSTIC FIBROSIS
     Dosage: 4 DF, BID (4 CAPSULE)
     Dates: start: 20130715, end: 20130729
  2. ADVAIR [Concomitant]
     Indication: BRONCHIAL HYPERREACTIVITY
     Dosage: 1 DF, BID
  3. SPIRIVA [Concomitant]
     Indication: BRONCHIAL HYPERREACTIVITY
     Dosage: UNK UKN, UNK
  4. ALBUTEROL [Concomitant]
     Indication: BRONCHIAL HYPERREACTIVITY
     Dosage: 3 DF, UNK
  5. PULMOZYME [Concomitant]
     Dosage: UNK UKN, UNK
  6. PRILOSEC [Concomitant]
     Indication: GASTROOESOPHAGEAL REFLUX DISEASE
     Dosage: 20 MG, UNK
  7. AMLODIPINE [Concomitant]
     Indication: HYPERTENSION
     Dosage: 5 MG, UNK
     Route: 065

REACTIONS (5)
  - Pneumonia [Unknown]
  - Bronchospasm [Recovered/Resolved]
  - Dyspnoea [Recovered/Resolved]
  - Pulmonary function test decreased [Recovered/Resolved]
  - Spirometry abnormal [Unknown]
